FAERS Safety Report 24739031 (Version 2)
Quarter: 2024Q4

REPORT INFORMATION
  Report Type: Spontaneous
  Country: US (occurrence: US)
  Receive Date: 20241216
  Receipt Date: 20241223
  Transmission Date: 20250115
  Serious: No
  Sender: AMGEN
  Company Number: US-AMGEN-USASP2024244951

PATIENT
  Age: 66 Year
  Sex: Male

DRUGS (3)
  1. XGEVA [Suspect]
     Active Substance: DENOSUMAB
     Indication: Papillary thyroid cancer
     Dosage: UNK, Q3MO (QUARTERLY)
     Route: 065
  2. XGEVA [Suspect]
     Active Substance: DENOSUMAB
     Indication: Metastases to spine
  3. XGEVA [Suspect]
     Active Substance: DENOSUMAB
     Indication: Metastases to lung

REACTIONS (2)
  - Metabolic disorder [Unknown]
  - Off label use [Unknown]
